FAERS Safety Report 7609984-1 (Version None)
Quarter: 2011Q3

REPORT INFORMATION
  Report Type: 
  Country: None (occurrence: None)
  Receive Date: 20110714
  Receipt Date: 20110705
  Transmission Date: 20111222
  Serious: Yes (Other)
  Sender: FDA-Public Use
  Company Number: CN-ASTRAZENECA-2011SE39905

PATIENT
  Age: 58 Year
  Sex: Male

DRUGS (3)
  1. VITAMIN B-12 [Concomitant]
  2. LIDOCAINE [Suspect]
     Indication: INTERVERTEBRAL DISC PROTRUSION
     Route: 058
  3. PREDNISONE [Concomitant]

REACTIONS (8)
  - EYE SWELLING [None]
  - OEDEMA MOUTH [None]
  - DYSPNOEA [None]
  - DYSPHONIA [None]
  - PRURITUS GENERALISED [None]
  - THROAT TIGHTNESS [None]
  - HYPOAESTHESIA ORAL [None]
  - DRUG HYPERSENSITIVITY [None]
